FAERS Safety Report 20820843 (Version 1)
Quarter: 2022Q2

REPORT INFORMATION
  Report Type: Spontaneous
  Country: US (occurrence: None)
  Receive Date: 20220512
  Receipt Date: 20220512
  Transmission Date: 20220720
  Serious: No
  Sender: FDA-Public Use
  Company Number: None

PATIENT
  Sex: Female

DRUGS (1)
  1. TEMOZOLOMIDE [Suspect]
     Active Substance: TEMOZOLOMIDE
     Indication: Lung neoplasm malignant
     Dosage: FREQUENCY : AS DIRECTED;?
     Route: 048
     Dates: start: 202104

REACTIONS (1)
  - Drug ineffective [None]
